FAERS Safety Report 10878155 (Version 2)
Quarter: 2015Q1

REPORT INFORMATION
  Report Type: Spontaneous
  Country: FR (occurrence: FR)
  Receive Date: 20150302
  Receipt Date: 20150302
  Transmission Date: 20150721
  Serious: Yes (Other)
  Sender: FDA-Public Use
  Company Number: FR-JNJFOC-20150218302

PATIENT
  Age: 76 Year
  Sex: Female

DRUGS (3)
  1. PRONTALGINE [Suspect]
     Active Substance: ACETAMINOPHEN\AMOBARBITAL\CAFFEINE\CODEINE PHOSPHATE
     Indication: HEADACHE
     Route: 048
     Dates: start: 20150124, end: 20150124
  2. CLARADOL CAFFEINE [Suspect]
     Active Substance: ACETAMINOPHEN\CAFFEINE
     Indication: HEADACHE
     Route: 048
     Dates: start: 20150124, end: 20150124
  3. IXPRIM [Suspect]
     Active Substance: ACETAMINOPHEN\TRAMADOL HYDROCHLORIDE
     Indication: HEADACHE
     Route: 048
     Dates: start: 20150124, end: 20150124

REACTIONS (4)
  - Vomiting [Recovered/Resolved]
  - Overdose [Recovered/Resolved]
  - Self-medication [None]
  - Medication error [Recovered/Resolved]

NARRATIVE: CASE EVENT DATE: 20150125
